FAERS Safety Report 25026195 (Version 1)
Quarter: 2025Q1

REPORT INFORMATION
  Report Type: Spontaneous
  Country: US (occurrence: US)
  Receive Date: 20250301
  Receipt Date: 20250301
  Transmission Date: 20250408
  Serious: Yes (Other)
  Sender: AMGEN
  Company Number: US-AMGEN-USASP2025035997

PATIENT
  Age: 92 Year
  Sex: Male

DRUGS (2)
  1. NPLATE [Suspect]
     Active Substance: ROMIPLOSTIM
     Indication: Immune thrombocytopenia
     Route: 058
     Dates: start: 20220613
  2. NPLATE [Suspect]
     Active Substance: ROMIPLOSTIM
     Dosage: 10 MILLIGRAM/KILOGRAM (AROUND 750MG), QWK, MAX DOSE
     Route: 058
     Dates: start: 202412

REACTIONS (3)
  - Implantable defibrillator replacement [Unknown]
  - Therapeutic product effect decreased [Unknown]
  - Platelet count decreased [Unknown]

NARRATIVE: CASE EVENT DATE: 20241201
